FAERS Safety Report 7550129-4 (Version None)
Quarter: 2011Q2

REPORT INFORMATION
  Report Type: 
  Country: None (occurrence: None)
  Receive Date: 20110615
  Receipt Date: 20110608
  Transmission Date: 20111010
  Serious: Yes (Death, Hospitalization)
  Sender: FDA-Public Use
  Company Number: FR-CEPHALON-2011000353

PATIENT
  Sex: Female
  Weight: 72 kg

DRUGS (4)
  1. DURAGESIC-100 [Concomitant]
     Dates: start: 20101101, end: 20110119
  2. BENDAMUSTINE HCL [Suspect]
     Indication: MULTIPLE MYELOMA
     Route: 042
     Dates: start: 20101110, end: 20110114
  3. DEXAMETHASONE [Suspect]
     Indication: MULTIPLE MYELOMA
     Route: 048
     Dates: start: 20101110, end: 20110114
  4. VELCADE [Suspect]
     Indication: MULTIPLE MYELOMA
     Route: 042
     Dates: start: 20101110, end: 20110114

REACTIONS (5)
  - HYPERTHERMIA [None]
  - LUNG DISORDER [None]
  - SOMNOLENCE [None]
  - ALTERED STATE OF CONSCIOUSNESS [None]
  - SEPSIS [None]
